FAERS Safety Report 6070017-2 (Version None)
Quarter: 2009Q1

REPORT INFORMATION
  Report Type: 
  Country: None (occurrence: None)
  Receive Date: 20090209
  Receipt Date: 20090129
  Transmission Date: 20090719
  Serious: Yes (Other)
  Sender: FDA-Public Use
  Company Number: PHNU2008DE01659

PATIENT
  Sex: Female

DRUGS (4)
  1. CLOZAPINE [Suspect]
     Dosage: 350 MG/DAY
     Route: 048
     Dates: start: 19950101, end: 20080424
  2. CLOZAPINE [Suspect]
     Dosage: 250 MG/DAY
     Route: 048
     Dates: start: 20080425
  3. ANTINEOPLASTIC AGENTS [Suspect]
     Indication: BREAST CANCER
  4. RISPERDAL [Suspect]
     Dosage: UNK

REACTIONS (8)
  - ACUTE PSYCHOSIS [None]
  - BLOOD COUNT ABNORMAL [None]
  - BREAST CANCER [None]
  - CHEMOTHERAPY [None]
  - LEUKOPENIA [None]
  - NEUTROPENIA [None]
  - OVARIAN CANCER [None]
  - SURGERY [None]
